FAERS Safety Report 10371903 (Version 4)
Quarter: 2015Q3

REPORT INFORMATION
  Report Type: Report from Study
  Country: DE (occurrence: DE)
  Receive Date: 20140808
  Receipt Date: 20150909
  Transmission Date: 20151125
  Serious: Yes (Hospitalization, Other)
  Sender: FDA-Public Use
  Company Number: DE-VIIV HEALTHCARE LIMITED-B1021638A

PATIENT
  Age: 74 Year
  Sex: Male
  Weight: 73 kg

DRUGS (6)
  1. VALSARTAN. [Concomitant]
     Active Substance: VALSARTAN
     Dates: start: 201011
  2. AMLODIPIN [Concomitant]
     Active Substance: AMLODIPINE BESYLATE
     Dates: start: 201001
  3. RALTEGRAVIR. [Concomitant]
     Active Substance: RALTEGRAVIR
     Indication: HIV INFECTION
     Route: 048
     Dates: start: 20110311
  4. METOCLOPRAMID [Concomitant]
     Active Substance: METOCLOPRAMIDE
     Dates: start: 1997
  5. TRUVADA [Concomitant]
     Active Substance: EMTRICITABINE\TENOFOVIR DISOPROXIL FUMARATE
     Indication: HIV INFECTION
     Route: 048
     Dates: start: 20110311
  6. MARAVIROC [Suspect]
     Active Substance: MARAVIROC
     Indication: HIV INFECTION
     Dosage: 300 MG, BID
     Route: 048
     Dates: start: 20140401

REACTIONS (2)
  - Adenocarcinoma of colon [Recovered/Resolved with Sequelae]
  - Ileus [Recovered/Resolved]

NARRATIVE: CASE EVENT DATE: 20140731
